FAERS Safety Report 15101131 (Version 2)
Quarter: 2018Q3

REPORT INFORMATION
  Report Type: Report from Study
  Country: DE (occurrence: DE)
  Receive Date: 20180703
  Receipt Date: 20180830
  Transmission Date: 20181010
  Serious: Yes (Other)
  Sender: FDA-Public Use
  Company Number: PHHY2018DE033319

PATIENT
  Sex: Female
  Weight: 65 kg

DRUGS (1)
  1. GLIVEC [Suspect]
     Active Substance: IMATINIB MESYLATE
     Indication: CHRONIC MYELOID LEUKAEMIA
     Dosage: LESS THAN EQUAL TO 400 MG, QD
     Route: 048
     Dates: start: 20121107, end: 20130313

REACTIONS (2)
  - Drug intolerance [Unknown]
  - Necrosis [Recovered/Resolved]

NARRATIVE: CASE EVENT DATE: 20130305
